FAERS Safety Report 16872793 (Version 2)
Quarter: 2019Q4

REPORT INFORMATION
  Report Type: Spontaneous
  Country: KW (occurrence: KW)
  Receive Date: 20191001
  Receipt Date: 20191010
  Transmission Date: 20200122
  Serious: Yes (Hospitalization, Other)
  Sender: FDA-Public Use
  Company Number: KW-PFIZER INC-2019414680

PATIENT

DRUGS (2)
  1. ECALTA [Suspect]
     Active Substance: ANIDULAFUNGIN
     Dosage: UNK
  2. METOPROLOL. [Suspect]
     Active Substance: METOPROLOL
     Indication: TACHYCARDIA
     Dosage: LOW DOSE

REACTIONS (1)
  - Bradycardia [Unknown]
